FAERS Safety Report 4390460-7 (Version None)
Quarter: 2004Q3

REPORT INFORMATION
  Report Type: 
  Country: None (occurrence: None)
  Receive Date: 20040706
  Receipt Date: 20040621
  Transmission Date: 20050211
  Serious: Yes (Other)
  Sender: FDA-Public Use
  Company Number: US-AMGEN-US080788

PATIENT
  Sex: Female
  Weight: 74.9 kg

DRUGS (8)
  1. ARANESP [Suspect]
     Indication: ANAEMIA OF MALIGNANT DISEASE
     Route: 058
     Dates: start: 20040414, end: 20040501
  2. EPOGEN [Suspect]
     Indication: ANAEMIA OF MALIGNANT DISEASE
     Dates: start: 20040528, end: 20040618
  3. NEUPOGEN [Suspect]
     Indication: CHEMOTHERAPY
     Dates: start: 20040517, end: 20040613
  4. NEULASTA [Suspect]
     Indication: CHEMOTHERAPY
     Dates: start: 20040415, end: 20040501
  5. ADRIAMYCIN PFS [Suspect]
     Dates: start: 20040414, end: 20040528
  6. CYTOXAN [Suspect]
     Dates: start: 20040414, end: 20040528
  7. TAXOL [Suspect]
     Route: 042
     Dates: start: 20040604, end: 20040611
  8. DECADRON [Concomitant]

REACTIONS (2)
  - APLASIA PURE RED CELL [None]
  - DRUG INEFFECTIVE [None]
